FAERS Safety Report 15558649 (Version 2)
Quarter: 2018Q4

REPORT INFORMATION
  Report Type: Report from Study
  Country: None (occurrence: CO)
  Receive Date: 20181029
  Receipt Date: 20181117
  Transmission Date: 20190205
  Serious: Yes (Death, Hospitalization, Other)
  Sender: FDA-Public Use
  Company Number: CO-ABBVIE-18K-036-2498438-00

PATIENT
  Age: 82 Year
  Sex: Female

DRUGS (1)
  1. HUMIRA [Suspect]
     Active Substance: ADALIMUMAB
     Indication: RHEUMATOID ARTHRITIS
     Route: 058
     Dates: start: 20111112

REACTIONS (5)
  - Hip fracture [Recovering/Resolving]
  - Fall [Unknown]
  - Multi-organ disorder [Unknown]
  - General physical health deterioration [Unknown]
  - Internal haemorrhage [Fatal]

NARRATIVE: CASE EVENT DATE: 201809
